FAERS Safety Report 13836271 (Version 2)
Quarter: 2017Q3

REPORT INFORMATION
  Report Type: Spontaneous
  Country: US (occurrence: US)
  Receive Date: 20170804
  Receipt Date: 20170825
  Transmission Date: 20171127
  Serious: Yes (Other)
  Sender: FDA-Public Use
  Company Number: PHEH2017US023168

PATIENT
  Sex: Female
  Weight: 56.24 kg

DRUGS (2)
  1. TRIAMTERENE AND HYDROCHLOROTHIAZIDE [Suspect]
     Active Substance: HYDROCHLOROTHIAZIDE\TRIAMTERENE
     Indication: MENIERE^S DISEASE
     Dosage: UNK
     Route: 048
     Dates: start: 201503
  2. TRIAMTERENE AND HYDROCHLOROTHIAZIDE [Suspect]
     Active Substance: HYDROCHLOROTHIAZIDE\TRIAMTERENE
     Dosage: 1 DF, QD
     Route: 048
     Dates: start: 201706, end: 201707

REACTIONS (4)
  - Loss of consciousness [Recovered/Resolved]
  - Drug ineffective [Unknown]
  - Nausea [Recovering/Resolving]
  - Vertigo [Not Recovered/Not Resolved]
